FAERS Safety Report 9603487 (Version 1)
Quarter: 2013Q4

REPORT INFORMATION
  Report Type: Spontaneous
  Country: US (occurrence: US)
  Receive Date: 20131007
  Receipt Date: 20131007
  Transmission Date: 20140711
  Serious: No
  Sender: FDA-Public Use
  Company Number: US-BAXTER-2013BAX037567

PATIENT
  Age: 62 Year
  Sex: Male

DRUGS (3)
  1. GAMMAGARD LIQUID [Suspect]
     Indication: PRODUCT USED FOR UNKNOWN INDICATION
     Route: 065
  2. GAMMAGARD LIQUID [Suspect]
     Route: 065
     Dates: start: 20130909, end: 20130909
  3. GAMMAGARD LIQUID [Suspect]
     Route: 065
     Dates: start: 20130916, end: 20130916

REACTIONS (3)
  - Diarrhoea [Recovered/Resolved]
  - Pruritus [Unknown]
  - Rash vesicular [Unknown]
